FAERS Safety Report 4590543-2 (Version None)
Quarter: 2005Q1

REPORT INFORMATION
  Report Type: 
  Country: None (occurrence: None)
  Receive Date: 20050224
  Receipt Date: 20050218
  Transmission Date: 20050727
  Serious: Yes (Hospitalization)
  Sender: FDA-Public Use
  Company Number: US-ROCHE-396073

PATIENT
  Age: 16 Year
  Sex: Female
  Weight: 65.8 kg

DRUGS (1)
  1. ACCUTANE [Suspect]
     Indication: ACNE
     Route: 065
     Dates: start: 20050119

REACTIONS (6)
  - ABDOMINAL PAIN UPPER [None]
  - HEAD INJURY [None]
  - HEADACHE [None]
  - SYNCOPE [None]
  - VOMITING [None]
  - WHITE BLOOD CELL COUNT INCREASED [None]
